FAERS Safety Report 5042245-6 (Version None)
Quarter: 2006Q2

REPORT INFORMATION
  Report Type: 
  Country: None (occurrence: None)
  Receive Date: 20060628
  Receipt Date: 20060612
  Transmission Date: 20061013
  Serious: Yes (Other)
  Sender: FDA-Public Use
  Company Number: 2006075103

PATIENT
  Sex: Female

DRUGS (1)
  1. XALATAN [Suspect]
     Indication: GLAUCOMA
     Dates: end: 20060101

REACTIONS (14)
  - ABASIA [None]
  - ARTHRALGIA [None]
  - CIRCUMSTANCE OR INFORMATION CAPABLE OF LEADING TO MEDICATION ERROR [None]
  - EYE IRRITATION [None]
  - EYE PAIN [None]
  - EYE PRURITUS [None]
  - EYELID OEDEMA [None]
  - FOREIGN BODY SENSATION IN EYES [None]
  - HYPERSENSITIVITY [None]
  - MENISCUS REMOVAL [None]
  - OCULAR HYPERAEMIA [None]
  - PHARMACEUTICAL PRODUCT COUNTERFEIT [None]
  - SENSATION OF PRESSURE [None]
  - SKIN EXFOLIATION [None]
